FAERS Safety Report 24409804 (Version 1)
Quarter: 2024Q4

REPORT INFORMATION
  Report Type: Report from Study
  Country: JP (occurrence: JP)
  Receive Date: 20241008
  Receipt Date: 20241008
  Transmission Date: 20250115
  Serious: Yes (Death, Hospitalization, Other)
  Sender: PFIZER
  Company Number: JP-EMA-20160613-ddevhumanwt-155015119

PATIENT
  Age: 64 Year
  Sex: Female
  Weight: 43 kg

DRUGS (59)
  1. MINOCYCLINE HYDROCHLORIDE [Suspect]
     Active Substance: MINOCYCLINE HYDROCHLORIDE
     Indication: Sepsis
     Dosage: 100 MG, 2X/DAY
     Dates: start: 20130715, end: 20130722
  2. MINOCYCLINE HYDROCHLORIDE [Suspect]
     Active Substance: MINOCYCLINE HYDROCHLORIDE
     Indication: Pneumonia
     Dosage: 100 MG, 2X/DAY
     Dates: start: 20130826, end: 20130901
  3. HYDROXYZINE HYDROCHLORIDE [Suspect]
     Active Substance: HYDROXYZINE HYDROCHLORIDE
     Indication: Sedative therapy
     Dosage: 50 MG, DAILY
     Dates: start: 20130722, end: 20130722
  4. HYDROXYZINE HYDROCHLORIDE [Suspect]
     Active Substance: HYDROXYZINE HYDROCHLORIDE
     Indication: Insomnia
     Dosage: 25 MG, 3X/DAY
     Dates: start: 20130731, end: 20130827
  5. HYDROXYZINE HYDROCHLORIDE [Suspect]
     Active Substance: HYDROXYZINE HYDROCHLORIDE
     Dosage: 50 MG, DAILY
     Dates: start: 20130821, end: 20130822
  6. PROPOFOL [Suspect]
     Active Substance: PROPOFOL
     Indication: Sedative therapy
     Dosage: UNK
     Dates: start: 20130627, end: 20130714
  7. ATOVAQUONE [Suspect]
     Active Substance: ATOVAQUONE
     Indication: Antifungal prophylaxis
     Dosage: 750 MG, 2X/DAY
     Route: 048
     Dates: start: 20130626, end: 20130716
  8. ATOVAQUONE [Suspect]
     Active Substance: ATOVAQUONE
     Indication: Pneumocystis jirovecii pneumonia
     Dosage: 1500 MG, DAILY
     Route: 048
     Dates: start: 20130717, end: 20130820
  9. ATOVAQUONE [Suspect]
     Active Substance: ATOVAQUONE
     Dosage: 750 MG, 2X/DAY
     Route: 048
     Dates: start: 20130821, end: 20130826
  10. POTASSIUM ASPARTATE [Suspect]
     Active Substance: POTASSIUM ASPARTATE
     Indication: Hypokalaemia
     Dosage: 10 MEQ, DAILY
     Dates: start: 20130626, end: 20130626
  11. POTASSIUM ASPARTATE [Suspect]
     Active Substance: POTASSIUM ASPARTATE
     Dosage: 10 MEQ, DAILY
     Dates: start: 20130628, end: 20130628
  12. AMINO ACIDS\DEXTROSE\ELECTROLYTES NOS\VITAMINS [Suspect]
     Active Substance: AMINO ACIDS\DEXTROSE\ELECTROLYTES NOS\VITAMINS
     Indication: Dehydration
     Dosage: 500 ML, DAILY
     Dates: start: 20130626, end: 20130626
  13. AMINO ACIDS\DEXTROSE\ELECTROLYTES NOS\VITAMINS [Suspect]
     Active Substance: AMINO ACIDS\DEXTROSE\ELECTROLYTES NOS\VITAMINS
     Dosage: 1000 ML, DAILY
     Dates: start: 20130821, end: 20130826
  14. AMINO ACIDS\DEXTROSE\ELECTROLYTES NOS\VITAMINS [Suspect]
     Active Substance: AMINO ACIDS\DEXTROSE\ELECTROLYTES NOS\VITAMINS
     Dosage: 500 ML, DAILY
     Dates: start: 20130827, end: 20130828
  15. ANHIBA [Suspect]
     Active Substance: ACETAMINOPHEN
     Indication: Interstitial lung disease
     Dosage: 200 MG, DAILY
     Dates: start: 20130624, end: 20130825
  16. CALCIUM CHLORIDE ANHYDROUS\POTASSIUM CHLORIDE\SODIUM CHLORIDE\SODIUM L [Suspect]
     Active Substance: CALCIUM CHLORIDE ANHYDROUS\POTASSIUM CHLORIDE\SODIUM CHLORIDE\SODIUM LACTATE
     Indication: Dehydration
     Dosage: 500 ML, DAILY
     Dates: start: 20130827, end: 20130828
  17. DEXTROSE\POTASSIUM CHLORIDE\SODIUM CHLORIDE\SODIUM LACTATE [Suspect]
     Active Substance: DEXTROSE MONOHYDRATE\POTASSIUM CHLORIDE\SODIUM CHLORIDE\SODIUM LACTATE
     Indication: Dehydration
     Dosage: 1200 ML, DAILY
     Dates: start: 20130719, end: 20130720
  18. DEXTROSE\POTASSIUM CHLORIDE\SODIUM CHLORIDE\SODIUM LACTATE [Suspect]
     Active Substance: DEXTROSE MONOHYDRATE\POTASSIUM CHLORIDE\SODIUM CHLORIDE\SODIUM LACTATE
     Dosage: 1200 ML, DAILY
     Dates: start: 20130830, end: 20130830
  19. VITAMINS NOS [Suspect]
     Active Substance: VITAMINS
     Indication: Hypovitaminosis
     Dosage: 1IUA, DAILY
     Dates: start: 20130719, end: 20130720
  20. SODIUM CHLORIDE [Suspect]
     Active Substance: SODIUM CHLORIDE
     Indication: Hyponatraemia
     Dosage: 40 ML, DAILY
     Dates: start: 20130816, end: 20130828
  21. SODIUM CHLORIDE [Suspect]
     Active Substance: SODIUM CHLORIDE
     Dosage: 2 G, 3X/DAY
     Dates: start: 20130817, end: 20130827
  22. BIFIDOBACTERIUM BIFIDUM [Suspect]
     Active Substance: BIFIDOBACTERIUM BIFIDUM
     Indication: Diarrhoea
     Dosage: 1 G, 3X/DAY
     Dates: start: 20130806, end: 20130827
  23. CUPRIC SULFATE\FERRIC CHLORIDE\MANGANESE CHLORIDE\POTASSIUM IODIDE\ZIN [Suspect]
     Active Substance: CUPRIC SULFATE\FERRIC CHLORIDE\MANGANESE CHLORIDE\POTASSIUM IODIDE\ZINC SULFATE
     Indication: Trace element deficiency
     Dosage: 1 DF, DAILY
     Dates: start: 20130719, end: 20130720
  24. FULCALIQ [Suspect]
     Active Substance: AMINO ACIDS\CARBOHYDRATES\ELECTROLYTES NOS\VITAMINS
     Indication: Dysphagia
     Dosage: 1806 ML, 1X/DAY
     Dates: start: 20130627, end: 20130629
  25. FULCALIQ [Suspect]
     Active Substance: AMINO ACIDS\CARBOHYDRATES\ELECTROLYTES NOS\VITAMINS
     Indication: Dehydration
     Dosage: 2006 ML, 1X/DAY
     Dates: start: 20130721, end: 20130815
  26. FULCALIQ [Suspect]
     Active Substance: AMINO ACIDS\CARBOHYDRATES\ELECTROLYTES NOS\VITAMINS
     Dosage: 1103 ML, 1X/DAY
     Dates: start: 20130816, end: 20130820
  27. DICLOFENAC [Suspect]
     Active Substance: DICLOFENAC
     Indication: Interstitial lung disease
     Dosage: 12.5 MG
     Dates: start: 20130627, end: 20130826
  28. CEFCAPENE PIVOXIL HYDROCHLORIDE [Suspect]
     Active Substance: CEFCAPENE PIVOXIL HYDROCHLORIDE
     Indication: Urinary tract infection
     Dosage: 300 MG, 3X/DAY
     Dates: start: 20130802, end: 20130803
  29. MIDAZOLAM MALEATE [Suspect]
     Active Substance: MIDAZOLAM MALEATE
     Indication: Sedative therapy
     Dosage: UNK
     Dates: start: 20130627, end: 20130627
  30. MIDAZOLAM MALEATE [Suspect]
     Active Substance: MIDAZOLAM MALEATE
     Dosage: UNK
     Dates: start: 20130704, end: 20130830
  31. METGLUCO [Suspect]
     Active Substance: METFORMIN HYDROCHLORIDE
     Indication: Steroid diabetes
     Dosage: 250 MG, 3X/DAY
     Dates: start: 20130729, end: 20130827
  32. TIAPRIDE HYDROCHLORIDE [Suspect]
     Active Substance: TIAPRIDE HYDROCHLORIDE
     Indication: Restlessness
     Dosage: 50 MG, 3X/DAY
     Dates: start: 20130804, end: 20130827
  33. NEXIUM I.V. [Suspect]
     Active Substance: ESOMEPRAZOLE SODIUM
     Indication: Prophylaxis against gastrointestinal ulcer
     Dosage: 20 MG, DAILY
     Dates: start: 20130408, end: 20130630
  34. LEVOFLOXACIN [Suspect]
     Active Substance: LEVOFLOXACIN
     Indication: Sepsis
     Dosage: 500 MG, 1X/DAY
     Dates: start: 20130803, end: 20130806
  35. LEVOFLOXACIN [Suspect]
     Active Substance: LEVOFLOXACIN
     Indication: Urinary tract infection
     Dosage: 500 MG, DAILY
     Dates: start: 20130823, end: 20130826
  36. AMPICILLIN SODIUM\SULBACTAM SODIUM [Suspect]
     Active Substance: AMPICILLIN SODIUM\SULBACTAM SODIUM
     Indication: Infection
     Dosage: 1.5 MG, 3X/DAY
     Dates: start: 20130624, end: 20130705
  37. NOREPINEPHRINE [Suspect]
     Active Substance: NOREPINEPHRINE\NOREPINEPHRINE BITARTRATE
     Indication: Blood pressure decreased
     Dosage: UNK
     Dates: start: 20130826, end: 20130901
  38. POTASSIUM CHLORIDE [Suspect]
     Active Substance: POTASSIUM CHLORIDE
     Indication: Hypokalaemia
     Dosage: 20 MEQ, 2X/DAY
     Dates: start: 20130629, end: 20130712
  39. POTASSIUM CHLORIDE [Suspect]
     Active Substance: POTASSIUM CHLORIDE
     Dosage: 20 MEQ, 2X/DAY
     Dates: start: 20130720, end: 20130720
  40. CALONAL [Suspect]
     Active Substance: ACETAMINOPHEN
     Indication: Interstitial lung disease
     Dosage: 200 MG
     Dates: start: 20130818, end: 20130823
  41. DIAZEPAM [Suspect]
     Active Substance: DIAZEPAM
     Indication: Sedative therapy
     Dosage: 10 MG, DAILY
     Dates: start: 20130709, end: 20130709
  42. ITRACONAZOLE [Suspect]
     Active Substance: ITRACONAZOLE
     Indication: Pneumonia fungal
     Dosage: 200 MG, 2X/DAY
     Dates: start: 20130625, end: 20130626
  43. ITRACONAZOLE [Suspect]
     Active Substance: ITRACONAZOLE
     Dosage: 200 MG, 1X/DAY
     Dates: start: 20130627, end: 20130701
  44. PREDNISOLONE SODIUM SUCCINATE [Suspect]
     Active Substance: PREDNISOLONE SODIUM SUCCINATE
     Indication: Interstitial lung disease
     Dosage: 15 MG, 2X/DAY
     Dates: start: 20130513
  45. MORPHINE HYDROCHLORIDE [Suspect]
     Active Substance: MORPHINE HYDROCHLORIDE
     Indication: Sedative therapy
     Dosage: UNK
     Dates: start: 20130627, end: 20130708
  46. DOPAMINE HYDROCHLORIDE [Suspect]
     Active Substance: DOPAMINE HYDROCHLORIDE
     Indication: Blood pressure decreased
     Dosage: UNK
     Dates: start: 20130627, end: 20130901
  47. FLUNITRAZEPAM [Suspect]
     Active Substance: FLUNITRAZEPAM
     Indication: Insomnia
     Dosage: 2 MG, 1X/DAY
     Dates: start: 20130731, end: 20130807
  48. DORIPENEM MONOHYDRATE [Suspect]
     Active Substance: DORIPENEM MONOHYDRATE
     Indication: Pneumonia
     Dosage: 1 G, 3X/DAY
     Dates: start: 20130705, end: 20130714
  49. DORIPENEM MONOHYDRATE [Suspect]
     Active Substance: DORIPENEM MONOHYDRATE
     Dosage: 1 G, 3X/DAY
     Dates: start: 20130826, end: 20130901
  50. HALOPERIDOL [Suspect]
     Active Substance: HALOPERIDOL
     Indication: Sedative therapy
     Dosage: 5 MG, DAILY
     Dates: start: 20130803, end: 20130803
  51. HALOPERIDOL [Suspect]
     Active Substance: HALOPERIDOL
     Dosage: 5 MG, DAILY
     Dates: start: 20130821, end: 20130822
  52. MOSAPRIDE CITRATE [Suspect]
     Active Substance: MOSAPRIDE CITRATE
     Indication: Constipation
     Dosage: 5 MG, 3X/DAY
     Dates: start: 20130709, end: 20130827
  53. LUNESTA [Suspect]
     Active Substance: ESZOPICLONE
     Indication: Insomnia
     Dosage: 1 MG, 1X/DAY
     Dates: start: 20130808, end: 20130827
  54. LANSOPRAZOLE [Suspect]
     Active Substance: LANSOPRAZOLE
     Indication: Prophylaxis against gastrointestinal ulcer
     Dosage: 30 MG, DAILY
     Dates: start: 20130701, end: 20130827
  55. SOLDEM 3A [Suspect]
     Active Substance: CARBOHYDRATES\POTASSIUM CHLORIDE\SODIUM CHLORIDE\SODIUM LACTATE
     Indication: Dehydration
     Dosage: 500 ML, 3X/DAY
     Dates: start: 20130627, end: 20130627
  56. HEPARIN SODIUM [Suspect]
     Active Substance: HEPARIN SODIUM
     Indication: Pulmonary embolism
     Dosage: 10 KIU, 1X/DAY
     Dates: start: 20130704, end: 20130826
  57. HUMULIN R [Suspect]
     Active Substance: INSULIN HUMAN
     Indication: Steroid diabetes
     Dosage: UNK
     Dates: start: 20130626, end: 20130826
  58. CALCIUM GLUCONATE\DEXTROSE\MAGNESIUM SULFATE\POTASSIUM ACETATE\POTASSI [Suspect]
     Active Substance: CALCIUM GLUCONATE\DEXTROSE\MAGNESIUM SULFATE\POTASSIUM ACETATE\POTASSIUM PHOSPHATE, DIBASIC\ZINC SUL
     Indication: Dehydration
     Dosage: 750 ML, 1X/DAY
     Dates: start: 20130719, end: 20130720
  59. FAMOTIDINE [Suspect]
     Active Substance: FAMOTIDINE
     Indication: Prophylaxis against gastrointestinal ulcer
     Dosage: 20 MG, 1X/DAY
     Dates: start: 20130827, end: 20130901

REACTIONS (18)
  - Steroid diabetes [Fatal]
  - Trace element deficiency [Fatal]
  - Anaemia macrocytic [Fatal]
  - Sepsis [Fatal]
  - Hypovitaminosis [Fatal]
  - Insomnia [Fatal]
  - Restlessness [Fatal]
  - Blood pressure decreased [Fatal]
  - Pneumonia [Fatal]
  - Constipation [Fatal]
  - Diarrhoea [Fatal]
  - Pulmonary embolism [Fatal]
  - Dehydration [Fatal]
  - Liver disorder [Fatal]
  - Vomiting [Fatal]
  - Hyponatraemia [Fatal]
  - Hypokalaemia [Recovered/Resolved]
  - Urinary tract infection [Recovered/Resolved]

NARRATIVE: CASE EVENT DATE: 20130626
